FAERS Safety Report 4668978-9 (Version None)
Quarter: 2005Q2

REPORT INFORMATION
  Report Type: 
  Country: None (occurrence: None)
  Receive Date: 20050523
  Receipt Date: 20050427
  Transmission Date: 20051028
  Serious: Yes (Hospitalization)
  Sender: FDA-Public Use
  Company Number: JP-GLAXOSMITHKLINE-B0379452A

PATIENT
  Age: 5 Year
  Sex: Male
  Weight: 18.6 kg

DRUGS (3)
  1. ZOVIRAX [Suspect]
     Indication: VARICELLA
     Dosage: .5G THREE TIMES PER DAY
     Route: 048
     Dates: start: 20050313, end: 20050316
  2. PHENOL + ZINC OXIDE LINIMENT [Concomitant]
     Indication: VARICELLA
  3. ACETAMINOPHEN [Concomitant]
     Route: 054
     Dates: start: 20050313

REACTIONS (6)
  - EPISTAXIS [None]
  - HAEMORRHAGE [None]
  - HYPERAEMIA [None]
  - IDIOPATHIC THROMBOCYTOPENIC PURPURA [None]
  - PLATELET COUNT DECREASED [None]
  - PYREXIA [None]
